FAERS Safety Report 5005509-8 (Version None)
Quarter: 2006Q2

REPORT INFORMATION
  Report Type: 
  Country: None (occurrence: None)
  Receive Date: 20060518
  Receipt Date: 20060509
  Transmission Date: 20061013
  Serious: Yes (Other)
  Sender: FDA-Public Use
  Company Number: JP-ROCHE-447706

PATIENT
  Age: 40 Year
  Sex: Female

DRUGS (2)
  1. PEGASYS [Suspect]
     Route: 058
     Dates: start: 20060413
  2. LOXONIN [Concomitant]
     Dosage: REPORTED DOSE FORM: ORAL FORMULATION (NOT OTHERWISE SPECIFIED).
     Route: 048

REACTIONS (1)
  - CONVULSION [None]
